FAERS Safety Report 6973676-2 (Version None)
Quarter: 2010Q3

REPORT INFORMATION
  Report Type: 
  Country: None (occurrence: None)
  Receive Date: 20100907
  Receipt Date: 20100823
  Transmission Date: 20110219
  Serious: Yes (Disabling)
  Sender: FDA-Public Use
  Company Number: DKLU1064549

PATIENT
  Age: 27 Year
  Sex: Male

DRUGS (1)
  1. SABRIL [Suspect]
     Indication: EPILEPSY
     Dates: start: 19920101, end: 20070901

REACTIONS (5)
  - DIZZINESS [None]
  - OPTIC ATROPHY [None]
  - VASCULAR STENOSIS [None]
  - VISION BLURRED [None]
  - VISUAL FIELD DEFECT [None]
